FAERS Safety Report 4470400-2 (Version None)
Quarter: 2004Q3

REPORT INFORMATION
  Report Type: 
  Country: None (occurrence: None)
  Receive Date: 20040910
  Receipt Date: 20040729
  Transmission Date: 20050211
  Serious: Yes (Other)
  Sender: FDA-Public Use
  Company Number: 2004-00303

PATIENT
  Sex: Male
  Weight: 81.6 kg

DRUGS (1)
  1. VELCADE [Suspect]

REACTIONS (1)
  - CARDIAC FAILURE CONGESTIVE [None]
